FAERS Safety Report 23040181 (Version 1)
Quarter: 2023Q4

REPORT INFORMATION
  Report Type: Spontaneous
  Country: GB (occurrence: GB)
  Receive Date: 20231006
  Receipt Date: 20231006
  Transmission Date: 20240110
  Serious: Yes (Hospitalization)
  Sender: FDA-Public Use
  Company Number: None

PATIENT
  Age: 13 Year

DRUGS (4)
  1. NOVORAPID [Suspect]
     Active Substance: INSULIN ASPART
     Indication: Product used for unknown indication
     Dosage: 10 ML
  2. LEVEMIR [Suspect]
     Active Substance: INSULIN DETEMIR
     Indication: Product used for unknown indication
     Dosage: 12  ML
  3. STERILE DILUENT (WATER) [Suspect]
     Active Substance: WATER
     Indication: Product used for unknown indication
     Dosage: UNK
     Route: 058
  4. STERILE DILUENT (WATER) [Suspect]
     Active Substance: WATER
     Dosage: UNK
     Route: 058

REACTIONS (5)
  - Renal injury [Unknown]
  - Blood ketone body increased [Unknown]
  - Blood glucose increased [Unknown]
  - Wrong product administered [Unknown]
  - Product dispensing error [Unknown]
